FAERS Safety Report 5521549-4 (Version None)
Quarter: 2007Q4

REPORT INFORMATION
  Report Type: 
  Country: None (occurrence: None)
  Receive Date: 20071115
  Receipt Date: 20071105
  Transmission Date: 20080405
  Serious: Yes (Hospitalization)
  Sender: FDA-Public Use
  Company Number: 2007JP004851

PATIENT
  Age: 16 Year
  Sex: Male

DRUGS (3)
  1. PROGRAF [Suspect]
     Indication: RENAL TRANSPLANT
     Dosage: 0.06 MG/KG,
     Dates: start: 20040901
  2. 5-AMINOSALICYLIC ACID FORMULATION UNKNOWN [Concomitant]
  3. METRONIDAZOLE (METRONIDAZOLE) FORMULATION UNKNOWN [Concomitant]

REACTIONS (3)
  - ANAL FISTULA [None]
  - CROHN'S DISEASE [None]
  - UPPER RESPIRATORY TRACT INFECTION [None]
